FAERS Safety Report 4342795-1 (Version None)
Quarter: 2004Q2

REPORT INFORMATION
  Report Type: 
  Country: None (occurrence: None)
  Receive Date: 20040421
  Receipt Date: 20040414
  Transmission Date: 20050107
  Serious: Yes (Other)
  Sender: FDA-Public Use
  Company Number: US-BRISTOL-MYERS SQUIBB COMPANY-12560181

PATIENT
  Age: 10 Year
  Sex: Male

DRUGS (1)
  1. ABILIFY [Suspect]
     Indication: MOOD SWINGS
     Dosage: WAS PRESCRIBED AS: 5 MG Q AM X 4 DAYS, THEN INCREASE TO 2 TABS (10 MG) Q AM
     Route: 048

REACTIONS (1)
  - ANAPHYLACTIC REACTION [None]
